FAERS Safety Report 20813271 (Version 1)
Quarter: 2022Q2

REPORT INFORMATION
  Report Type: Other
  Country: US (occurrence: US)
  Receive Date: 20220511
  Receipt Date: 20220511
  Transmission Date: 20220721
  Serious: Yes (Other)
  Sender: FDA-Public Use
  Company Number: US-ACORDA-ACO_172121_2022

PATIENT
  Sex: Female

DRUGS (1)
  1. AMPYRA [Suspect]
     Active Substance: DALFAMPRIDINE
     Indication: Multiple sclerosis
     Dosage: 10 MILLIGRAM, BID (1 IN THE MORNING, 1 IN THE EVENING)
     Route: 048
     Dates: start: 201802, end: 20220207

REACTIONS (2)
  - Seizure [Unknown]
  - COVID-19 [Unknown]
